FAERS Safety Report 25721365 (Version 1)
Quarter: 2025Q3

REPORT INFORMATION
  Report Type: Report from Study
  Country: EU (occurrence: EU)
  Receive Date: 20250825
  Receipt Date: 20250825
  Transmission Date: 20251021
  Serious: Yes (Other)
  Sender: ETON PHARMACEUTICALS, INC
  Company Number: EU-IPSEN Group, Research and Development-2012-7492

PATIENT

DRUGS (2)
  1. INCRELEX [Suspect]
     Active Substance: MECASERMIN
     Indication: Primary insulin like growth factor-1 deficiency
     Dosage: 0.12 MILLIGRAM/KILOGRAM, BID
     Route: 058
     Dates: start: 20100929, end: 20131114
  2. INCRELEX [Suspect]
     Active Substance: MECASERMIN
     Dosage: 0.04 MILLIGRAM/KILOGRAM, QD
     Route: 058
     Dates: start: 20090901, end: 20100928

REACTIONS (2)
  - Osteochondrosis [Recovered/Resolved]
  - Headache [Recovered/Resolved]

NARRATIVE: CASE EVENT DATE: 20120829
